FAERS Safety Report 10933029 (Version 2)
Quarter: 2015Q1

REPORT INFORMATION
  Report Type: Report from Study
  Country: US (occurrence: US)
  Receive Date: 20150320
  Receipt Date: 20150325
  Transmission Date: 20150721
  Serious: Yes (Other)
  Sender: FDA-Public Use
  Company Number: US-ROCHE-1553039

PATIENT
  Sex: Male

DRUGS (1)
  1. LUCENTIS [Suspect]
     Active Substance: RANIBIZUMAB
     Indication: DIABETIC RETINAL OEDEMA
     Dosage: BOTH EYES
     Route: 050
     Dates: start: 2015

REACTIONS (4)
  - Metamorphopsia [Unknown]
  - Corneal abrasion [Unknown]
  - Vision blurred [Recovering/Resolving]
  - Visual impairment [Unknown]
